FAERS Safety Report 25544037 (Version 2)
Quarter: 2025Q3

REPORT INFORMATION
  Report Type: Spontaneous
  Country: AR (occurrence: AR)
  Receive Date: 20250711
  Receipt Date: 20250811
  Transmission Date: 20251021
  Serious: Yes (Other)
  Sender: SANOFI AVENTIS
  Company Number: AR-SA-2025SA192727

PATIENT
  Age: 70 Year
  Sex: Female

DRUGS (2)
  1. SARCLISA [Suspect]
     Active Substance: ISATUXIMAB-IRFC
     Route: 042
     Dates: start: 20250702
  2. SARCLISA [Suspect]
     Active Substance: ISATUXIMAB-IRFC
     Route: 042
     Dates: start: 20250702

REACTIONS (5)
  - Plasma cell myeloma recurrent [Unknown]
  - Cytopenia [Unknown]
  - Tachypnoea [Recovered/Resolved]
  - Dyspnoea [Recovering/Resolving]
  - Oxygen saturation decreased [Recovering/Resolving]

NARRATIVE: CASE EVENT DATE: 20250702
